FAERS Safety Report 5020663-X (Version None)
Quarter: 2006Q2

REPORT INFORMATION
  Report Type: 
  Country: None (occurrence: None)
  Receive Date: 20060602
  Receipt Date: 20060512
  Transmission Date: 20061013
  Serious: Yes (Other)
  Sender: FDA-Public Use
  Company Number: US200604003015

PATIENT
  Age: 87 Year
  Sex: Female

DRUGS (4)
  1. FORTEO [Suspect]
     Indication: OSTEOPOROSIS
     Dates: start: 20051201
  2. FORTEO [Concomitant]
  3. CALCIUM GLUCONATE [Concomitant]
  4. PREDNISONE [Concomitant]

REACTIONS (5)
  - BLOOD CALCIUM INCREASED [None]
  - INCREASED UPPER AIRWAY SECRETION [None]
  - MUSCULAR WEAKNESS [None]
  - NASAL CONGESTION [None]
  - PHARMACEUTICAL PRODUCT COMPLAINT [None]
